FAERS Safety Report 4342590-3 (Version None)
Quarter: 2004Q2

REPORT INFORMATION
  Report Type: 
  Country: None (occurrence: None)
  Receive Date: 20040416
  Receipt Date: 20040402
  Transmission Date: 20050107
  Serious: Yes (Hospitalization)
  Sender: FDA-Public Use
  Company Number: PERI00204001025

PATIENT
  Age: 45 Year
  Sex: Female
  Weight: 58 kg

DRUGS (4)
  1. COVERSYL (PERINDOPRIL) [Suspect]
     Indication: HYPERTENSION
     Dosage: 4 MG QD PO
     Route: 048
     Dates: end: 20030607
  2. ACTRAPID (INSULIN) [Concomitant]
  3. LEVOTHYROXINE SODIUM [Concomitant]
  4. CLAVUCID (CLAVUCID) [Concomitant]

REACTIONS (4)
  - ANGIONEUROTIC OEDEMA [None]
  - DIABETES MELLITUS INADEQUATE CONTROL [None]
  - DYSPHAGIA [None]
  - DYSPNOEA [None]
